FAERS Safety Report 9813698 (Version 1)
Quarter: 2014Q1

REPORT INFORMATION
  Report Type: Spontaneous
  Country: US (occurrence: None)
  Receive Date: 20140109
  Receipt Date: 20140109
  Transmission Date: 20141002
  Serious: Yes (Hospitalization)
  Sender: FDA-Public Use
  Company Number: None

PATIENT
  Age: 64 Year
  Sex: Female
  Weight: 69 kg

DRUGS (2)
  1. DAPTOMYCIN [Suspect]
     Indication: ARTHRITIS BACTERIAL
     Route: 042
  2. DAPTOMYCIN [Suspect]
     Indication: STAPHYLOCOCCAL INFECTION
     Route: 042

REACTIONS (4)
  - Renal failure acute [None]
  - Hepatitis acute [None]
  - Rhabdomyolysis [None]
  - Haemodialysis [None]
